FAERS Safety Report 8260450-2 (Version None)
Quarter: 2012Q2

REPORT INFORMATION
  Report Type: 
  Country: None (occurrence: None)
  Receive Date: 20120404
  Receipt Date: 20120328
  Transmission Date: 20120825
  Serious: Yes (Other)
  Sender: FDA-Public Use
  Company Number: US-FRI-1000029416

PATIENT
  Age: 69 Year
  Sex: Female

DRUGS (10)
  1. VIIBRYD [Suspect]
     Dosage: 20 MG
     Route: 048
  2. FLEXERIL [Concomitant]
  3. VIIBRYD [Suspect]
     Dosage: 40 MG
     Route: 048
     Dates: end: 20120220
  4. NIASPAN [Concomitant]
     Indication: BLOOD CHOLESTEROL INCREASED
  5. VIIBRYD [Suspect]
     Indication: DEPRESSION
     Dosage: 10 MG
     Route: 048
     Dates: start: 20120101
  6. VIIBRYD [Suspect]
     Dosage: 20 MG
     Route: 048
     Dates: start: 20120221, end: 20120222
  7. METOPROLOL TARTRATE [Concomitant]
     Indication: HYPERTENSION
  8. ALPRAZOLAM [Concomitant]
     Indication: ANXIETY
  9. ASPIRIN [Concomitant]
  10. GABAPENTIN [Concomitant]
     Indication: NEUROPATHY PERIPHERAL

REACTIONS (4)
  - DISORIENTATION [None]
  - HALLUCINATION, VISUAL [None]
  - CONFUSIONAL STATE [None]
  - NAUSEA [None]
